FAERS Safety Report 5424361-X (Version None)
Quarter: 2007Q3

REPORT INFORMATION
  Report Type: 
  Country: None (occurrence: None)
  Receive Date: 20070727
  Receipt Date: 20070510
  Transmission Date: 20080115
  Serious: No
  Sender: FDA-Public Use
  Company Number: 263690

PATIENT
  Age: 62 Year
  Sex: Male

DRUGS (8)
  1. LEVEMIR [Suspect]
     Indication: TYPE 2 DIABETES MELLITUS
     Dosage: 100 IU, QD, (QPM), SUBCUTANEOUS
     Route: 058
  2. SYMLIN [Suspect]
     Indication: TYPE 2 DIABETES MELLITUS
     Dosage: 60 MEQ, SUBCUTANEOUS ; 120 MEQ, SUBCUTANEOUS
     Route: 058
     Dates: start: 20070301, end: 20070316
  3. SYMLIN [Suspect]
     Indication: TYPE 2 DIABETES MELLITUS
     Dosage: 60 MEQ, SUBCUTANEOUS ; 120 MEQ, SUBCUTANEOUS
     Route: 058
     Dates: start: 20070317
  4. HUMALOG [Suspect]
     Indication: TYPE 2 DIABETES MELLITUS
     Dosage: SUBCUTANEOUS
     Route: 058
  5. FISH OIL (FISH OIL) [Suspect]
     Indication: BLOOD CHOLESTEROL INCREASED
     Dosage: ORAL
     Route: 048
     Dates: end: 20070321
  6. ASPIRIN [Suspect]
     Indication: BLOOD CHOLESTEROL INCREASED
     Dosage: ORAL
     Route: 048
     Dates: end: 20070321
  7. SYNTHROID [Suspect]
     Indication: THYROID DISORDER
     Dosage: ORAL
     Route: 048
  8. PROTONIX /01263201/(PANTOPRAZOLE) [Suspect]
     Indication: STOMACH DISCOMFORT
     Dosage: ORAL
     Route: 048

REACTIONS (3)
  - BLOOD GLUCOSE FLUCTUATION [None]
  - DRUG INTERACTION [None]
  - STOMACH DISCOMFORT [None]
